FAERS Safety Report 11786286 (Version 1)
Quarter: 2015Q4

REPORT INFORMATION
  Report Type: Spontaneous
  Country: US (occurrence: None)
  Receive Date: 20151125
  Receipt Date: 20151125
  Transmission Date: 20160305
  Serious: Yes (Hospitalization)
  Sender: FDA-Public Use
  Company Number: None

PATIENT
  Age: 68 Year
  Sex: Female

DRUGS (1)
  1. PROLIA [Suspect]
     Active Substance: DENOSUMAB
     Indication: OSTEOPOROSIS
     Dosage: 60MG ONCE EVERY 6 MONTHS SUB-Q
     Route: 058
     Dates: start: 20150903, end: 20150903

REACTIONS (6)
  - Cough [None]
  - Night sweats [None]
  - Asthenia [None]
  - Pancreatitis [None]
  - Oesophageal pain [None]
  - Alopecia [None]

NARRATIVE: CASE EVENT DATE: 20150924
